FAERS Safety Report 25538650 (Version 1)
Quarter: 2025Q3

REPORT INFORMATION
  Report Type: Spontaneous
  Country: US (occurrence: None)
  Receive Date: 20250709
  Receipt Date: 20250709
  Transmission Date: 20251020
  Serious: Yes (Hospitalization)
  Sender: FDA-CTU
  Company Number: None

PATIENT
  Age: 74 Year
  Sex: Male

DRUGS (9)
  1. REVLIMID [Suspect]
     Active Substance: LENALIDOMIDE
     Indication: Plasma cell myeloma
     Dosage: 10 MG DAILY OL ?
     Route: 048
     Dates: start: 20250122
  2. ALLOPURINOL [Concomitant]
     Active Substance: ALLOPURINOL
  3. AMLODIPINE [Concomitant]
     Active Substance: AMLODIPINE BESYLATE
  4. ATORVASTATIN [Concomitant]
     Active Substance: ATORVASTATIN
  5. Azelastine 0.1% [Concomitant]
  6. COLCHICINE [Concomitant]
     Active Substance: COLCHICINE
  7. dulera 200-5 mg [Concomitant]
  8. epnephrine 0.3 mg [Concomitant]
  9. VALSARTAN [Concomitant]
     Active Substance: VALSARTAN

REACTIONS (2)
  - Sepsis [None]
  - Pneumonia bacterial [None]

NARRATIVE: CASE EVENT DATE: 20250708
